FAERS Safety Report 21206902 (Version 1)
Quarter: 2022Q3

REPORT INFORMATION
  Report Type: Spontaneous
  Country: US (occurrence: None)
  Receive Date: 20220811
  Receipt Date: 20220811
  Transmission Date: 20221026
  Serious: No
  Sender: FDA-Public Use
  Company Number: None

PATIENT
  Age: 76 Year
  Sex: Female
  Weight: 54.43 kg

DRUGS (1)
  1. PAXLOVID [Suspect]
     Active Substance: NIRMATRELVIR\RITONAVIR
     Dosage: 300 MG BID ORAL
     Route: 048
     Dates: start: 20220728, end: 20220801

REACTIONS (2)
  - COVID-19 [None]
  - Oropharyngeal pain [None]

NARRATIVE: CASE EVENT DATE: 20220808
